FAERS Safety Report 6014859-8 (Version None)
Quarter: 2008Q4

REPORT INFORMATION
  Report Type: 
  Country: None (occurrence: None)
  Receive Date: 20081219
  Receipt Date: 20081215
  Transmission Date: 20090506
  Serious: Yes (Hospitalization, Other)
  Sender: FDA-Public Use
  Company Number: GB-ROXANE LABORATORIES, INC.-2008-RO-00429RO

PATIENT
  Age: 72 Year
  Sex: Female

DRUGS (9)
  1. CYCLOPHOSPHAMIDE [Suspect]
     Indication: WEGENER'S GRANULOMATOSIS
  2. CYCLOPHOSPHAMIDE [Suspect]
     Indication: GLOMERULONEPHRITIS
     Route: 042
  3. DEXAMETHASONE [Suspect]
     Indication: BRAIN NEOPLASM
     Dosage: 4MG
  4. METHYLPREDNISOLONE 16MG TAB [Suspect]
     Indication: WEGENER'S GRANULOMATOSIS
  5. METHYLPREDNISOLONE 16MG TAB [Suspect]
     Indication: GLOMERULONEPHRITIS
  6. PREDNISOLONE [Suspect]
     Indication: WEGENER'S GRANULOMATOSIS
     Dosage: 30MG
     Route: 048
  7. PREDNISOLONE [Suspect]
     Indication: GLOMERULONEPHRITIS
     Dosage: 10MG
     Route: 048
  8. PLASMA EXCHANGE [Concomitant]
     Indication: WEGENER'S GRANULOMATOSIS
  9. PLASMA EXCHANGE [Concomitant]
     Indication: GLOMERULONEPHRITIS

REACTIONS (4)
  - CENTRAL NERVOUS SYSTEM LYMPHOMA [None]
  - EPSTEIN-BARR VIRAEMIA [None]
  - NEOPLASM PROGRESSION [None]
  - WEGENER'S GRANULOMATOSIS [None]
